FAERS Safety Report 18101326 (Version 1)
Quarter: 2020Q3

REPORT INFORMATION
  Report Type: Spontaneous
  Country: DK (occurrence: DK)
  Receive Date: 20200801
  Receipt Date: 20200801
  Transmission Date: 20201103
  Serious: Yes (Other)
  Sender: FDA-Public Use
  Company Number: DK-BION-008883

PATIENT
  Age: 37 Year
  Sex: Male

DRUGS (1)
  1. AMPHETAMINE SULFATE. [Suspect]
     Active Substance: AMPHETAMINE SULFATE
     Indication: PRODUCT USED FOR UNKNOWN INDICATION
     Dosage: ONCE A WEEK

REACTIONS (2)
  - Vertebral artery dissection [Recovered/Resolved]
  - Drug abuse [Unknown]
